FAERS Safety Report 16467689 (Version 2)
Quarter: 2019Q3

REPORT INFORMATION
  Report Type: Spontaneous
  Country: ES (occurrence: ES)
  Receive Date: 20190624
  Receipt Date: 20190701
  Transmission Date: 20191004
  Serious: Yes (Other)
  Sender: FDA-Public Use
  Company Number: ES-LUPIN PHARMACEUTICALS INC.-2019-03757

PATIENT
  Age: 94 Year
  Sex: Male

DRUGS (2)
  1. ATORVASTATIN CALCIUM. [Suspect]
     Active Substance: ATORVASTATIN CALCIUM
     Indication: DYSLIPIDAEMIA
     Dosage: 40 MILLIGRAM, QD (LONG-TERM TREATMENT WITH STATINS)
     Route: 065
  2. COLCHICINE. [Interacting]
     Active Substance: COLCHICINE
     Indication: GOUTY ARTHRITIS
     Dosage: 0.5 MILLIGRAM, QD
     Route: 065

REACTIONS (4)
  - Drug interaction [Unknown]
  - Myopathy toxic [Recovering/Resolving]
  - Renal impairment [Recovering/Resolving]
  - Quadriparesis [Recovering/Resolving]
